FAERS Safety Report 21889809 (Version 1)
Quarter: 2023Q1

REPORT INFORMATION
  Report Type: Spontaneous
  Country: US (occurrence: US)
  Receive Date: 20230120
  Receipt Date: 20230120
  Transmission Date: 20230417
  Serious: No
  Sender: FDA-Public Use
  Company Number: US-PFIZER INC-PV202200068524

PATIENT
  Age: 15 Year
  Sex: Male

DRUGS (1)
  1. IBRANCE [Suspect]
     Active Substance: PALBOCICLIB
     Indication: Adrenal gland cancer
     Dosage: 100 MG

REACTIONS (3)
  - Malaise [Unknown]
  - Off label use [Unknown]
  - Off label use [Unknown]
